FAERS Safety Report 5698808-8 (Version None)
Quarter: 2008Q2

REPORT INFORMATION
  Report Type: 
  Country: None (occurrence: None)
  Receive Date: 20080403
  Receipt Date: 20080324
  Transmission Date: 20081010
  Serious: Yes (Hospitalization)
  Sender: FDA-Public Use
  Company Number: 75694

PATIENT
  Age: 80 Year
  Sex: Male

DRUGS (2)
  1. IBUPROFEN [Suspect]
     Indication: BACK PAIN
     Dosage: 400MG/ ORAL
     Route: 048
     Dates: start: 20070201, end: 20070401
  2. PARACETAMOL [Concomitant]

REACTIONS (1)
  - FAECES DISCOLOURED [None]
